FAERS Safety Report 5095270-3 (Version None)
Quarter: 2006Q3

REPORT INFORMATION
  Report Type: 
  Country: None (occurrence: None)
  Receive Date: 20060901
  Receipt Date: 20060829
  Transmission Date: 20061208
  Serious: Yes (Hospitalization)
  Sender: FDA-Public Use
  Company Number: US-MERCK-0608USA06796

PATIENT
  Age: 47 Year
  Sex: Male

DRUGS (2)
  1. VYTORIN [Suspect]
     Indication: BLOOD CHOLESTEROL INCREASED
     Route: 048
     Dates: start: 20050101, end: 20060101
  2. ATACAND [Concomitant]
     Route: 065

REACTIONS (3)
  - DRUG LEVEL INCREASED [None]
  - GALLBLADDER DISORDER [None]
  - MUSCLE ATROPHY [None]
